FAERS Safety Report 10855561 (Version 1)
Quarter: 2015Q1

REPORT INFORMATION
  Report Type: Spontaneous
  Country: US (occurrence: None)
  Receive Date: 20150218
  Receipt Date: 20150218
  Transmission Date: 20150721
  Serious: Yes (Disabling)
  Sender: FDA-Public Use
  Company Number: None

PATIENT
  Age: 53 Year
  Sex: Male
  Weight: 99.79 kg

DRUGS (8)
  1. LORATADINE. [Concomitant]
     Active Substance: LORATADINE
  2. AMLODIPINE [Concomitant]
     Active Substance: AMLODIPINE BESYLATE
  3. NIACIN. [Concomitant]
     Active Substance: NIACIN
  4. DAILY VITAMINS [Concomitant]
  5. SULFASALAZINE. [Concomitant]
     Active Substance: SULFASALAZINE
  6. HUMIRA [Suspect]
     Active Substance: ADALIMUMAB
     Indication: PSORIATIC ARTHROPATHY
     Dosage: GIVEN INTO/UNDER THE SKIN
     Route: 058
  7. LOSARTAN [Concomitant]
     Active Substance: LOSARTAN
  8. FLONASE [Concomitant]
     Active Substance: FLUTICASONE PROPIONATE

REACTIONS (2)
  - Pain [None]
  - Skin mass [None]

NARRATIVE: CASE EVENT DATE: 20150123
